FAERS Safety Report 22202351 (Version 1)
Quarter: 2023Q2

REPORT INFORMATION
  Report Type: Spontaneous
  Country: US (occurrence: US)
  Receive Date: 20230412
  Receipt Date: 20230412
  Transmission Date: 20230721
  Serious: No
  Sender: FDA-Public Use
  Company Number: US-PFIZER INC-PV202300064850

PATIENT
  Age: 35 Year
  Sex: Female

DRUGS (1)
  1. NURTEC ODT [Suspect]
     Active Substance: RIMEGEPANT SULFATE
     Indication: Hypothyroidism
     Dosage: UNK

REACTIONS (7)
  - Pain [Unknown]
  - Aura [Unknown]
  - Nausea [Unknown]
  - Photosensitivity reaction [Unknown]
  - Hyperacusis [Unknown]
  - Off label use [Unknown]
  - Maternal exposure during pregnancy [Unknown]
